FAERS Safety Report 5432217-1 (Version None)
Quarter: 2007Q3

REPORT INFORMATION
  Report Type: 
  Country: None (occurrence: None)
  Receive Date: 20070830
  Receipt Date: 20070819
  Transmission Date: 20080115
  Serious: Yes (Other)
  Sender: FDA-Public Use
  Company Number: US-PFIZER INC-2007069382

PATIENT
  Sex: Female
  Weight: 99.8 kg

DRUGS (7)
  1. CHANTIX [Suspect]
  2. NEURONTIN [Concomitant]
  3. CYMBALTA [Concomitant]
  4. KLONOPIN [Concomitant]
  5. SPIRONOLACTONE [Concomitant]
  6. CRESTOR [Concomitant]
  7. ASPIRIN [Concomitant]

REACTIONS (4)
  - ANOREXIA [None]
  - ANXIETY [None]
  - DEPRESSION [None]
  - WEIGHT DECREASED [None]
